FAERS Safety Report 9804745 (Version 1)
Quarter: 2014Q1

REPORT INFORMATION
  Report Type: Spontaneous
  Country: TN (occurrence: TN)
  Receive Date: 20140108
  Receipt Date: 20140108
  Transmission Date: 20141002
  Serious: Yes (Death, Other)
  Sender: FDA-Public Use
  Company Number: TN-PFIZER INC-2014001280

PATIENT
  Age: 47 Year
  Sex: Male

DRUGS (4)
  1. CIPROFLOXACIN [Suspect]
     Indication: ANTIBIOTIC THERAPY
     Dosage: UNK
  2. CYTARABINE [Suspect]
     Indication: CHEMOTHERAPY
     Dosage: 200MG M2/DAY FOR 7 DAYS
  3. IDARUBICIN HCL [Suspect]
     Indication: CHEMOTHERAPY
     Dosage: 12 MG M2/DAY FOR 3 DAYS
  4. IMIPENEM [Suspect]
     Indication: ANTIBIOTIC THERAPY
     Dosage: UNK

REACTIONS (2)
  - Fungaemia [Fatal]
  - Neutropenia [Not Recovered/Not Resolved]
